FAERS Safety Report 14487754 (Version 1)
Quarter: 2018Q1

REPORT INFORMATION
  Report Type: Spontaneous
  Country: CH (occurrence: CH)
  Receive Date: 20180205
  Receipt Date: 20180205
  Transmission Date: 20180509
  Serious: Yes (Hospitalization)
  Sender: FDA-Public Use
  Company Number: CH-ROCHE-2062331

PATIENT
  Age: 48 Year
  Sex: Female

DRUGS (10)
  1. MOTILIUM [Concomitant]
     Active Substance: DOMPERIDONE
     Route: 065
  2. COTELLIC [Suspect]
     Active Substance: COBIMETINIB
     Indication: METASTATIC MALIGNANT MELANOMA
     Route: 048
     Dates: start: 20171218, end: 20171228
  3. ZELBORAF [Suspect]
     Active Substance: VEMURAFENIB
     Indication: METASTATIC MALIGNANT MELANOMA
     Route: 048
     Dates: start: 20171218, end: 20171228
  4. TAFINLAR [Suspect]
     Active Substance: DABRAFENIB MESYLATE
     Indication: METASTATIC MALIGNANT MELANOMA
     Route: 065
     Dates: start: 20171115, end: 20171125
  5. REMERON [Concomitant]
     Active Substance: MIRTAZAPINE
     Route: 048
  6. MEKINIST [Suspect]
     Active Substance: TRAMETINIB DIMETHYL SULFOXIDE
     Indication: METASTATIC MALIGNANT MELANOMA
     Route: 065
     Dates: start: 20171115, end: 20171125
  7. PANTOZOL (SWITZERLAND) [Concomitant]
     Active Substance: PANTOPRAZOLE SODIUM
     Route: 048
  8. EUTHYROX [Concomitant]
     Active Substance: LEVOTHYROXINE SODIUM
     Route: 048
  9. IMODIUM [Concomitant]
     Active Substance: LOPERAMIDE HYDROCHLORIDE
     Route: 065
  10. PREDNISON GALEPHARM [Concomitant]
     Active Substance: PREDNISONE
     Route: 048

REACTIONS (12)
  - General physical health deterioration [Unknown]
  - Stomatitis [Recovered/Resolved]
  - Drug reaction with eosinophilia and systemic symptoms [Recovered/Resolved]
  - Dermatitis exfoliative generalised [Recovered/Resolved]
  - Tachycardia [Unknown]
  - Stomatitis [Unknown]
  - Rash maculo-papular [Unknown]
  - Pyrexia [Unknown]
  - Transaminases increased [Recovered/Resolved]
  - Systemic inflammatory response syndrome [Recovered/Resolved]
  - Drug reaction with eosinophilia and systemic symptoms [Unknown]
  - Systemic inflammatory response syndrome [Unknown]

NARRATIVE: CASE EVENT DATE: 20171126
